FAERS Safety Report 9473322 (Version 2)
Quarter: 2013Q3

REPORT INFORMATION
  Report Type: Spontaneous
  Country: US (occurrence: US)
  Receive Date: 20130823
  Receipt Date: 20130823
  Transmission Date: 20140515
  Serious: No
  Sender: FDA-Public Use
  Company Number: US-GALDERMA-US-GDP-12414167

PATIENT
  Age: 79 Year
  Sex: Female
  Weight: 61 kg

DRUGS (11)
  1. METROGEL [Suspect]
     Indication: ROSACEA
     Route: 061
     Dates: start: 20120614, end: 20120616
  2. WARFARIN [Concomitant]
     Indication: ATRIAL FIBRILLATION
     Route: 048
     Dates: start: 20010904
  3. WARFARIN [Concomitant]
     Route: 048
     Dates: start: 20010904
  4. PACERONE [Concomitant]
     Indication: ATRIAL FIBRILLATION
     Route: 048
     Dates: start: 2006
  5. PACERONE [Concomitant]
     Route: 048
     Dates: start: 2006
  6. DIOVAN HCT [Concomitant]
     Indication: HYPERTENSION
     Dates: start: 1987
  7. LOPRESSOR [Concomitant]
     Indication: HYPERTENSION
     Route: 048
     Dates: start: 1982
  8. OXYBUTYNIN [Concomitant]
     Indication: ATONIC URINARY BLADDER
     Route: 048
     Dates: start: 1985
  9. MULTIVITAMIN [Concomitant]
     Route: 048
  10. CALTRATE 600-D [Concomitant]
     Route: 048
  11. FACE POWDER [Concomitant]
     Route: 061

REACTIONS (4)
  - Muscular weakness [Recovered/Resolved]
  - Headache [Recovered/Resolved]
  - Pain of skin [Recovered/Resolved]
  - Nausea [Recovered/Resolved]
